FAERS Safety Report 5866199-5 (Version None)
Quarter: 2008Q3

REPORT INFORMATION
  Report Type: 
  Country: None (occurrence: None)
  Receive Date: 20080829
  Receipt Date: 20080819
  Transmission Date: 20090109
  Serious: Yes (Hospitalization)
  Sender: FDA-Public Use
  Company Number: GB-PFIZER INC-2008069408

PATIENT
  Age: 64 Year
  Sex: Female
  Weight: 41 kg

DRUGS (5)
  1. CHANTIX [Suspect]
     Indication: SMOKING CESSATION THERAPY
     Route: 048
  2. FUROSEMIDE [Concomitant]
     Route: 048
  3. NICORANDIL [Concomitant]
     Route: 048
  4. RAMIPRIL [Concomitant]
     Route: 048
  5. DILTIAZEM HCL [Concomitant]
     Route: 048

REACTIONS (2)
  - ANGINA PECTORIS [None]
  - ELECTROCARDIOGRAM ST SEGMENT DEPRESSION [None]
